FAERS Safety Report 4903968-X (Version None)
Quarter: 2006Q1

REPORT INFORMATION
  Report Type: 
  Country: None (occurrence: None)
  Receive Date: 20060208
  Receipt Date: 20010824
  Transmission Date: 20060701
  Serious: No
  Sender: FDA-Public Use
  Company Number: US-GLAXOSMITHKLINE-A0352303A

PATIENT
  Age: 39 Year
  Sex: Female

DRUGS (8)
  1. PAXIL [Suspect]
     Indication: PANIC REACTION
     Route: 048
     Dates: start: 19970529, end: 19970930
  2. PREMARIN [Concomitant]
     Dosage: .9MG PER DAY
  3. GINKO [Concomitant]
  4. ZANTAC [Concomitant]
     Dosage: 150MG PER DAY
     Route: 048
  5. PRINIVIL [Concomitant]
  6. INDERAL LA [Concomitant]
     Dosage: 120MG PER DAY
  7. KLONOPIN [Concomitant]
     Dosage: 2MG PER DAY
  8. CARAFATE [Concomitant]

REACTIONS (45)
  - ABDOMINAL DISCOMFORT [None]
  - ABDOMINAL PAIN [None]
  - AGGRESSION [None]
  - AGITATION [None]
  - ANOREXIA [None]
  - ANXIETY [None]
  - ASTHENIA [None]
  - BRADYCARDIA [None]
  - CONFUSIONAL STATE [None]
  - COORDINATION ABNORMAL [None]
  - CRYING [None]
  - DEPRESSED LEVEL OF CONSCIOUSNESS [None]
  - DEPRESSION [None]
  - DIARRHOEA [None]
  - DISTURBANCE IN ATTENTION [None]
  - DIZZINESS [None]
  - DRUG WITHDRAWAL SYNDROME [None]
  - EYE MOVEMENT DISORDER [None]
  - FATIGUE [None]
  - FLUSHING [None]
  - GAIT DISTURBANCE [None]
  - HEADACHE [None]
  - HYPERHIDROSIS [None]
  - INFLUENZA [None]
  - IRRITABILITY [None]
  - LETHARGY [None]
  - MALAISE [None]
  - MEMORY IMPAIRMENT [None]
  - MYALGIA [None]
  - NAUSEA [None]
  - NERVOUSNESS [None]
  - NIGHTMARE [None]
  - PALPITATIONS [None]
  - PARAESTHESIA [None]
  - PYREXIA [None]
  - SENSORY DISTURBANCE [None]
  - SEXUAL DYSFUNCTION [None]
  - SINUS ARRHYTHMIA [None]
  - SLEEP DISORDER [None]
  - SOMNOLENCE [None]
  - TINNITUS [None]
  - TREMOR [None]
  - VERTIGO [None]
  - VOMITING [None]
  - WEIGHT INCREASED [None]
